FAERS Safety Report 9121886 (Version 1)
Quarter: 2013Q1

REPORT INFORMATION
  Report Type: Spontaneous
  Country: US (occurrence: None)
  Receive Date: 20130125
  Receipt Date: 20130125
  Transmission Date: 20140127
  Serious: No
  Sender: FDA-Public Use
  Company Number: 2012US-004381

PATIENT
  Age: 68 Year
  Sex: Female

DRUGS (24)
  1. OMONTYS (PEGINESATIDE) SOLUTION FOR INJECTION [Suspect]
     Indication: NEPHROGENIC ANAEMIA
     Dosage: 10 MG, Q4 WEEKS, INTRAVENOUS
     Route: 042
     Dates: start: 20120904, end: 20120904
  2. VITAMIN D (ERGOCALCIFEROL) [Concomitant]
  3. FLUTICASONE PROPIONATE (FLUTICASONE PROPIONATE) [Concomitant]
  4. PROMETHAZINE (PROMETHAZINE) [Concomitant]
  5. TRAZODONE (TRAZODONE) [Concomitant]
  6. KAYEXALATE (SODIUM POLYSTYRENE SULFONATE) [Concomitant]
  7. INSULIN DETEMIR (INSULIN DETEMIR) [Concomitant]
  8. MIRALAX [Concomitant]
  9. LACTULOSE (LACTULOSE) [Concomitant]
  10. REQUIP (ROPINIROLE HYDROCHLORIDE) [Concomitant]
  11. TRAVOPROST (TRAVOPROST) [Concomitant]
  12. OCULAR EXTRACTIVES (AMINO ACIDS NOS, CALCIUM, MAGNESIUM, NUCLEOTIDES NOS, POLYPEPTIDE) [Concomitant]
  13. NOVOLOG (INSULIN ASPART) [Concomitant]
  14. FISH OIL (FISH OIL) [Concomitant]
  15. TRAMADOL (TRAMADOL) [Concomitant]
  16. PRILOSEC [Concomitant]
  17. CARVEDILOL (CARVEDILOL) [Concomitant]
  18. DIALYVITE (ASCORBIC ACID, BIOTIN, FOLIC ACID, MECOBALAMIN, NICOTINIC ACID, PANTOTHENIC ACID, PYRIDOXINE HYDROCHLORIDE, RIBOVLAVIN, THIAMINE) [Concomitant]
  19. ASA (ACETYLSALICYLIC ACID) [Concomitant]
  20. CARBIDOPA-LEVODOPA-B (CARBIDOPA, LEVODOPA) [Concomitant]
  21. LEVOTHYROXINE (LEVOTHYROXINE) [Concomitant]
  22. SINGULAR (MONTHELUKAST SODIUM) [Concomitant]
  23. NORVASC (AMLODIPINE BESILATE) [Concomitant]
  24. PRAVASTATIN (PRAVASTATIN) [Concomitant]

REACTIONS (5)
  - Dysarthria [None]
  - Malaise [None]
  - Nausea [None]
  - Vomiting [None]
  - Blood pressure decreased [None]
